FAERS Safety Report 13558561 (Version 2)
Quarter: 2017Q2

REPORT INFORMATION
  Report Type: Spontaneous
  Country: US (occurrence: US)
  Receive Date: 20170518
  Receipt Date: 20170630
  Transmission Date: 20170830
  Serious: Yes (Other)
  Sender: FDA-Public Use
  Company Number: US-AMGEN-USASP2017072751

PATIENT
  Age: 0 Day
  Sex: Female
  Weight: 3.94 kg

DRUGS (1)
  1. ENBREL [Suspect]
     Active Substance: ETANERCEPT
     Indication: EXPOSURE DURING PREGNANCY
     Dosage: 50 MG, QWK
     Route: 064

REACTIONS (3)
  - Cardiac arrest neonatal [Recovered/Resolved]
  - Jaundice neonatal [Recovered/Resolved]
  - Neonatal respiratory arrest [Recovered/Resolved]

NARRATIVE: CASE EVENT DATE: 20161026
